FAERS Safety Report 23045078 (Version 1)
Quarter: 2023Q4

REPORT INFORMATION
  Report Type: Spontaneous
  Country: US (occurrence: US)
  Receive Date: 20231009
  Receipt Date: 20231009
  Transmission Date: 20240109
  Serious: No
  Sender: FDA-Public Use
  Company Number: US-PFIZER INC-202300317486

PATIENT
  Age: 62 Year
  Sex: Female

DRUGS (1)
  1. PAXLOVID [Suspect]
     Active Substance: NIRMATRELVIR\RITONAVIR
     Indication: COVID-19 treatment
     Dosage: UNK
     Dates: start: 20230903

REACTIONS (6)
  - Cough [Recovering/Resolving]
  - Nasopharyngitis [Unknown]
  - Illness [Unknown]
  - Pulmonary pain [Unknown]
  - White blood cell count decreased [Unknown]
  - Full blood count decreased [Unknown]
